FAERS Safety Report 6823338-7 (Version None)
Quarter: 2010Q3

REPORT INFORMATION
  Report Type: 
  Country: None (occurrence: None)
  Receive Date: 20100708
  Receipt Date: 20100707
  Transmission Date: 20110219
  Serious: Yes (Death)
  Sender: FDA-Public Use
  Company Number: US-GILEAD-2010-0030255

PATIENT
  Sex: Female

DRUGS (14)
  1. LETAIRIS [Suspect]
     Indication: PULMONARY ARTERIAL HYPERTENSION
     Route: 048
     Dates: start: 20100417
  2. PREDNISONE [Concomitant]
  3. DIGOXIN [Concomitant]
  4. LASIX [Concomitant]
  5. ASPIRIN [Concomitant]
  6. LISINOPRIL [Concomitant]
  7. AZITHROMYCIN [Concomitant]
  8. POTASSIUM CHLORIDE [Concomitant]
  9. LOVAZA [Concomitant]
  10. OS-CAL [Concomitant]
  11. XANAX [Concomitant]
  12. PERCOCET [Concomitant]
  13. REGLAN [Concomitant]
  14. PROCTO FOAM [Concomitant]

REACTIONS (1)
  - DEATH [None]
